FAERS Safety Report 9378679 (Version 1)
Quarter: 2013Q2

REPORT INFORMATION
  Report Type: Spontaneous
  Country: TW (occurrence: None)
  Receive Date: 20130626
  Receipt Date: 20130626
  Transmission Date: 20140414
  Serious: Yes (Other)
  Sender: FDA-Public Use
  Company Number: FK201302138

PATIENT
  Age: 21 Year
  Sex: Male

DRUGS (5)
  1. VALPROATE [Suspect]
     Indication: SCHIZOPHRENIA
  2. ZOTEPINE [Suspect]
     Indication: SCHIZOPHRENIA
     Dosage: 300 MG, STARTED ON DAY 11 + TITRATED TO 300 MG/D,
  3. ZOTEPINE [Suspect]
     Indication: PSYCHOTIC DISORDER
     Dosage: 300 MG, STARTED ON DAY 11 + TITRATED TO 300 MG/D,
  4. OLANZAPINE [Suspect]
     Indication: SCHIZOPHRENIA
     Dosage: , UNK DOSE TAPERED WHILE ZOTEPINE TITRATED,
  5. CLONAZEPAM (CLONAZEPAM) (CLONAZEPAM) [Suspect]
     Indication: PRODUCT USED FOR UNKNOWN INDICATION

REACTIONS (5)
  - Myopathy [None]
  - No therapeutic response [None]
  - Blood lactate dehydrogenase increased [None]
  - Psychotic disorder [None]
  - Disease recurrence [None]
